FAERS Safety Report 10156457 (Version 1)
Quarter: 2014Q2

REPORT INFORMATION
  Report Type: Report from Study
  Country: FR (occurrence: None)
  Receive Date: 20140505
  Receipt Date: 20140505
  Transmission Date: 20141212
  Serious: Yes (Hospitalization)
  Sender: FDA-Public Use
  Company Number: FRA-CLT-2012123

PATIENT
  Age: 37 Year
  Sex: Male

DRUGS (10)
  1. CYSTADANE [Suspect]
     Indication: HOMOCYSTINURIA
     Dates: start: 200001
  2. PLAVIX (CLOPIDOGREL) [Concomitant]
  3. TEGRETOL (CARBAMAZEPINE) [Concomitant]
  4. SPECIAFOLDINE (FOLIC ACID) [Concomitant]
  5. CALCIUM SANDOZ (CALCIUM) [Concomitant]
  6. CYSTINE B6 (VITAMIN B6) [Concomitant]
  7. VITAMIN B12 [Concomitant]
  8. VASTEN (PRAVASTATIN) [Concomitant]
  9. FORSTEO (TERIPARTIDE) [Concomitant]
  10. MAXAMUM [Concomitant]

REACTIONS (3)
  - Osteonecrosis of jaw [None]
  - Inappropriate schedule of drug administration [None]
  - Influenza [None]
